FAERS Safety Report 7111585-9 (Version None)
Quarter: 2010Q4

REPORT INFORMATION
  Report Type: 
  Country: None (occurrence: None)
  Receive Date: 20101118
  Receipt Date: 20100129
  Transmission Date: 20110411
  Serious: No
  Sender: FDA-Public Use
  Company Number: US-TEVA-222787USA

PATIENT
  Sex: Female

DRUGS (3)
  1. ALBUTEROL SULFATE AUTOHALER [Suspect]
     Indication: ASTHMA
     Route: 055
  2. PRIMATENE MIST [Suspect]
     Indication: ASTHMA
     Route: 055
  3. EPINEPHRINE [Suspect]
     Indication: ASTHMA
     Route: 048

REACTIONS (7)
  - ASTHMA [None]
  - DRUG INEFFECTIVE [None]
  - DYSPNOEA [None]
  - HEADACHE [None]
  - HEART RATE INCREASED [None]
  - PULMONARY CONGESTION [None]
  - RESPIRATORY TRACT INFECTION [None]
